FAERS Safety Report 4589738-3 (Version None)
Quarter: 2005Q1

REPORT INFORMATION
  Report Type: 
  Country: None (occurrence: None)
  Receive Date: 20050223
  Receipt Date: 20050210
  Transmission Date: 20050727
  Serious: Yes (Other)
  Sender: FDA-Public Use
  Company Number: GB-GLAXOSMITHKLINE-B0371491A

PATIENT
  Age: 48 Year
  Sex: Female
  Weight: 82.6 kg

DRUGS (5)
  1. NIQUITIN CQ 21MG [Suspect]
     Route: 062
     Dates: start: 20050129, end: 20050129
  2. ALLOPURINOL [Concomitant]
     Indication: GOUT
     Route: 048
     Dates: start: 20030318
  3. THYROXINE [Concomitant]
     Indication: HYPOTHYROIDISM
     Route: 048
     Dates: start: 20020515
  4. PAROXETINE HCL [Concomitant]
     Indication: AGORAPHOBIA
     Route: 048
     Dates: start: 20000807
  5. VITAMIN B COMPLEX CAP [Concomitant]
     Indication: ALCOHOL USE
     Route: 048
     Dates: start: 20011126

REACTIONS (2)
  - CIRCULATORY COLLAPSE [None]
  - LOSS OF CONSCIOUSNESS [None]
